FAERS Safety Report 9832294 (Version 4)
Quarter: 2014Q2

REPORT INFORMATION
  Report Type: Spontaneous
  Country: US (occurrence: US)
  Receive Date: 20140121
  Receipt Date: 20140507
  Transmission Date: 20141212
  Serious: Yes (Death, Hospitalization, Other)
  Sender: FDA-Public Use
  Company Number: US-009507513-1401USA007784

PATIENT
  Sex: Male
  Weight: 94.33 kg

DRUGS (4)
  1. JANUMET [Suspect]
     Indication: TYPE 2 DIABETES MELLITUS
     Dosage: 50 MG/1000 MG, UNK
     Route: 048
     Dates: start: 2010
  2. VICTOZA [Suspect]
     Indication: TYPE 2 DIABETES MELLITUS
     Dosage: 1.2 MG, QD
     Dates: start: 2009, end: 201304
  3. METFORMIN [Concomitant]
     Indication: TYPE 2 DIABETES MELLITUS
     Dosage: 1000 MG, BID
  4. ACTOS [Concomitant]
     Indication: TYPE 2 DIABETES MELLITUS
     Dosage: UNK
     Dates: start: 20120719

REACTIONS (23)
  - Pancreatic carcinoma [Unknown]
  - Lung carcinoma cell type unspecified stage IV [Fatal]
  - Metastases to liver [Unknown]
  - Bile duct cancer [Unknown]
  - Adenocarcinoma gastric [Unknown]
  - Pneumonia [Recovered/Resolved]
  - Acute respiratory failure [Unknown]
  - Sepsis [Unknown]
  - Atrial fibrillation [Recovered/Resolved]
  - Cardiac failure [Unknown]
  - Fluid overload [Unknown]
  - Hypothyroidism [Unknown]
  - Calculus prostatic [Unknown]
  - Calculus bladder [Unknown]
  - Bladder calculus removal [Unknown]
  - Hypokalaemia [Unknown]
  - Chronic respiratory failure [Not Recovered/Not Resolved]
  - Basedow^s disease [Unknown]
  - Peripheral venous disease [Unknown]
  - Bronchitis [Unknown]
  - Weight decreased [Unknown]
  - Hyperlipidaemia [Unknown]
  - Emphysema [Unknown]
